FAERS Safety Report 17129568 (Version 2)
Quarter: 2019Q4

REPORT INFORMATION
  Report Type: Spontaneous
  Country: US (occurrence: US)
  Receive Date: 20191209
  Receipt Date: 20191210
  Transmission Date: 20200122
  Serious: No
  Sender: FDA-Public Use
  Company Number: US-PFIZER INC-2019529626

PATIENT
  Sex: Female

DRUGS (1)
  1. IBRANCE [Suspect]
     Active Substance: PALBOCICLIB
     Indication: BREAST CANCER FEMALE
     Dosage: 100 MG, CYCLIC (21 DAYS, THEN OFF FOR 7 DAYS )
     Route: 048
     Dates: start: 20190814

REACTIONS (3)
  - Chills [Unknown]
  - Hot flush [Unknown]
  - Alopecia [Unknown]
